FAERS Safety Report 8050010-0 (Version None)
Quarter: 2012Q1

REPORT INFORMATION
  Report Type: 
  Country: None (occurrence: None)
  Receive Date: 20120117
  Receipt Date: 20120108
  Transmission Date: 20120608
  Serious: Yes (Other)
  Sender: FDA-Public Use
  Company Number: IL-MPIJNJ-2012-00154

PATIENT

DRUGS (4)
  1. DEXAMETHASONE [Concomitant]
  2. VELCADE [Suspect]
     Indication: PRODUCT USED FOR UNKNOWN INDICATION
  3. CYCLOPHOSPHAMIDE [Concomitant]
  4. MABTHERA [Concomitant]

REACTIONS (1)
  - SCROTAL PAIN [None]
